FAERS Safety Report 7505482-4 (Version None)
Quarter: 2011Q2

REPORT INFORMATION
  Report Type: 
  Country: None (occurrence: None)
  Receive Date: 20110526
  Receipt Date: 20110519
  Transmission Date: 20111010
  Serious: Yes (Hospitalization)
  Sender: FDA-Public Use
  Company Number: US-SANOFI-AVENTIS-2011SA023154

PATIENT
  Age: 29 Year
  Sex: Male
  Weight: 65.31 kg

DRUGS (4)
  1. TOPROL-XL [Concomitant]
     Route: 048
  2. MULTAQ [Suspect]
     Route: 048
     Dates: start: 20110301, end: 20110318
  3. FUROSEMIDE [Concomitant]
     Dosage: FOR WEIGHT GAIN OF MORE THAN 3 POUNDS IN 24 HOURS
  4. PRINIVIL [Concomitant]
     Route: 048

REACTIONS (12)
  - LIVER FUNCTION TEST ABNORMAL [None]
  - OCULAR ICTERUS [None]
  - HYPOTENSION [None]
  - HYPONATRAEMIA [None]
  - EJECTION FRACTION DECREASED [None]
  - ATRIAL THROMBOSIS [None]
  - BRAIN NATRIURETIC PEPTIDE INCREASED [None]
  - DYSPEPSIA [None]
  - HEPATITIS [None]
  - HEPATOCELLULAR INJURY [None]
  - CARDIAC FAILURE CONGESTIVE [None]
  - TACHYCARDIA [None]
